FAERS Safety Report 7974520 (Version 6)
Quarter: 2012Q4

REPORT INFORMATION
  Report Type: 
  Country: US (occurrence: US)
  Receive Date: 20110603
  Receipt Date: 20121017
  Transmission Date: 20130627
  Serious: Yes (Other)
  Sender: FDA-Public Use
  Company Number: US-AMGEN-USASP2011026767

PATIENT
  Age: 47 Year
  Sex: Female
  Weight: 117.96 kg

DRUGS (4)
  1. PROCRIT [Suspect]
     Indication: HEPATITIS C
     Dosage: 40000 IU, qwk
     Route: 058
     Dates: start: 200911, end: 201009
  2. RIBAVIRIN [Concomitant]
     Dosage: 400 mg, qd
     Route: 048
  3. PEGASYS                            /01557901/ [Concomitant]
     Dosage: 180 mg, qd
     Route: 048
     Dates: start: 201011
  4. LEVOTHYROXINE [Concomitant]
     Dosage: UNK UNK, qd
     Route: 048

REACTIONS (7)
  - General physical health deterioration [Unknown]
  - Gait disturbance [Recovered/Resolved]
  - Alopecia [Recovered/Resolved]
  - Dyspnoea [Recovered/Resolved]
  - Fatigue [Unknown]
  - Weight decreased [Recovered/Resolved]
  - Insomnia [Unknown]
